FAERS Safety Report 4728088-9 (Version None)
Quarter: 2005Q3

REPORT INFORMATION
  Report Type: 
  Country: None (occurrence: None)
  Receive Date: 20050729
  Receipt Date: 20050722
  Transmission Date: 20060218
  Serious: Yes (Other)
  Sender: FDA-Public Use
  Company Number: PHRM2005FR02147

PATIENT
  Age: 75 Year
  Sex: Female

DRUGS (2)
  1. THALIDOMIDE [Concomitant]
  2. ZOMETA [Suspect]
     Indication: MULTIPLE MYELOMA
     Dosage: 4 MG, QMO
     Route: 042
     Dates: start: 20020101

REACTIONS (1)
  - ASEPTIC NECROSIS BONE [None]
